FAERS Safety Report 24263907 (Version 1)
Quarter: 2024Q3

REPORT INFORMATION
  Report Type: Spontaneous
  Country: US (occurrence: None)
  Receive Date: 20240828
  Receipt Date: 20240828
  Transmission Date: 20241016
  Serious: No
  Sender: Public
  Company Number: None

PATIENT

DRUGS (2)
  1. ADENOSINE [Suspect]
     Active Substance: ADENOSINE
  2. NALOXONE [Suspect]
     Active Substance: NALOXONE

REACTIONS (1)
  - Product label confusion [None]
